FAERS Safety Report 20488939 (Version 2)
Quarter: 2022Q1

REPORT INFORMATION
  Report Type: Spontaneous
  Country: US (occurrence: US)
  Receive Date: 20220218
  Receipt Date: 20220314
  Transmission Date: 20220423
  Serious: No
  Sender: FDA-Public Use
  Company Number: US-GLENMARK PHARMACEUTICALS-2021GMK069588

PATIENT

DRUGS (6)
  1. ASPIRIN\DIPYRIDAMOLE [Suspect]
     Active Substance: ASPIRIN\DIPYRIDAMOLE
     Indication: Cerebrovascular accident
     Dosage: UNK, BID
     Route: 048
  2. LATANOPROST [Concomitant]
     Active Substance: LATANOPROST
     Indication: Intraocular pressure test abnormal
     Dosage: (2.5 ML) 1 DROP EACH EYE ONE TIME
     Route: 031
  3. ASPIRIN [Concomitant]
     Active Substance: ASPIRIN
     Indication: Cerebrovascular accident prophylaxis
     Dosage: UNK, OD
     Route: 065
     Dates: start: 2016
  4. LOSARTAN [Concomitant]
     Active Substance: LOSARTAN
     Indication: Hypertension
     Dosage: UNK, OD
     Route: 048
  5. MIDODRINE [Concomitant]
     Active Substance: MIDODRINE
     Indication: Hypotension
     Dosage: UNK, OD
     Route: 048
  6. GABAPENTIN [Concomitant]
     Active Substance: GABAPENTIN
     Indication: Arthralgia
     Dosage: 1 DOSAGE FORM (ONE PILL TWO TIME PER WEEK)
     Route: 048
     Dates: start: 2019

REACTIONS (5)
  - Product dose omission issue [Unknown]
  - Incorrect dose administered [Unknown]
  - Product physical issue [Unknown]
  - Product commingling [Unknown]
  - No adverse event [Unknown]
